FAERS Safety Report 17940594 (Version 7)
Quarter: 2022Q2

REPORT INFORMATION
  Report Type: Spontaneous
  Country: US (occurrence: US)
  Receive Date: 20200624
  Receipt Date: 20220412
  Transmission Date: 20220720
  Serious: No
  Sender: FDA-Public Use
  Company Number: NVSC2020US174994

PATIENT
  Age: 73 Year
  Sex: Female

DRUGS (3)
  1. TAFINLAR [Suspect]
     Active Substance: DABRAFENIB MESYLATE
     Indication: Lung neoplasm malignant
     Dosage: 150 MG, Q12H
     Route: 048
     Dates: start: 20200528
  2. TAFINLAR [Suspect]
     Active Substance: DABRAFENIB MESYLATE
     Dosage: 150 MG, BID
     Route: 048
     Dates: start: 202005
  3. MEKINIST [Suspect]
     Active Substance: TRAMETINIB DIMETHYL SULFOXIDE
     Indication: Lung neoplasm malignant
     Dosage: 2 MG, QD
     Route: 048
     Dates: start: 20200528

REACTIONS (9)
  - Faeces hard [Unknown]
  - Muscle strain [Unknown]
  - Discomfort [Unknown]
  - Pain [Unknown]
  - Bowel movement irregularity [Unknown]
  - Halo vision [Unknown]
  - Rash macular [Unknown]
  - Visual impairment [Unknown]
  - Constipation [Unknown]

NARRATIVE: CASE EVENT DATE: 20220101
